FAERS Safety Report 6559687-X (Version None)
Quarter: 2010Q1

REPORT INFORMATION
  Report Type: 
  Country: None (occurrence: None)
  Receive Date: 20100129
  Receipt Date: 20090908
  Transmission Date: 20100710
  Serious: No
  Sender: FDA-Public Use
  Company Number: US-ABBOTT-09P-163-0595946-00

PATIENT
  Sex: Male
  Weight: 62.652 kg

DRUGS (10)
  1. HUMIRA [Suspect]
     Indication: CROHN'S DISEASE
     Dosage: 160MG; DAY 1
     Dates: start: 20090826, end: 20090826
  2. HUMIRA [Suspect]
  3. ASACOL [Concomitant]
     Indication: CROHN'S DISEASE
  4. LEVOXYL [Concomitant]
     Indication: HYPOTHYROIDISM
  5. SIMVASTATIN [Concomitant]
     Indication: BLOOD CHOLESTEROL INCREASED
  6. WELLBUTRIN [Concomitant]
     Indication: DEPRESSION
  7. LORAZEPAM [Concomitant]
     Indication: ANXIETY
  8. ZYRTEC [Concomitant]
     Indication: HYPERSENSITIVITY
  9. MULTI-VITAMIN [Concomitant]
     Indication: DRUG USE FOR UNKNOWN INDICATION
  10. FOLATE [Concomitant]
     Indication: BLOOD COUNT ABNORMAL

REACTIONS (4)
  - CROHN'S DISEASE [None]
  - INJECTION SITE ERYTHEMA [None]
  - INJECTION SITE REACTION [None]
  - INJECTION SITE URTICARIA [None]
